FAERS Safety Report 7121509-6 (Version None)
Quarter: 2010Q4

REPORT INFORMATION
  Report Type: 
  Country: None (occurrence: None)
  Receive Date: 20101124
  Receipt Date: 20101111
  Transmission Date: 20110411
  Serious: Yes (Disabling, Other)
  Sender: FDA-Public Use
  Company Number: US-ELI_LILLY_AND_COMPANY-US200912002558

PATIENT
  Age: 72 Year
  Sex: Female

DRUGS (12)
  1. PROZAC [Suspect]
     Indication: DEPRESSION
     Dosage: 20 MG, DAILY (1/D)
     Route: 065
     Dates: start: 19900101, end: 20070101
  2. PROZAC [Suspect]
     Dosage: 40 MG, DAILY (1/D)
     Dates: start: 20070101
  3. PLAVIX [Concomitant]
  4. SALAGEN [Concomitant]
  5. AMITRIPTYLINE HCL [Concomitant]
  6. HYZAAR [Concomitant]
  7. ASPIRIN CHILDREN [Concomitant]
  8. MACRODANTIN [Concomitant]
  9. BISOPROLOL FUMARATE [Concomitant]
  10. HUMALOG [Concomitant]
  11. LANTUS [Concomitant]
  12. ZETIA [Concomitant]

REACTIONS (10)
  - ADVERSE EVENT [None]
  - CATARACT OPERATION [None]
  - CEREBROVASCULAR ACCIDENT [None]
  - CORONARY ARTERY BYPASS [None]
  - DISABILITY [None]
  - DRUG INEFFECTIVE [None]
  - FALL [None]
  - HYPOAESTHESIA [None]
  - MUSCLE STRAIN [None]
  - NEUROPATHIC ARTHROPATHY [None]
